FAERS Safety Report 7585534-3 (Version None)
Quarter: 2011Q2

REPORT INFORMATION
  Report Type: 
  Country: None (occurrence: None)
  Receive Date: 20110628
  Receipt Date: 20110628
  Transmission Date: 20111010
  Serious: Yes (Other)
  Sender: FDA-Public Use
  Company Number: None

PATIENT
  Sex: Female
  Weight: 81.6475 kg

DRUGS (1)
  1. CARBIDOPA AND LEVODOPA [Suspect]
     Indication: PARKINSON'S DISEASE
     Dosage: 1 TAB - 5 - DAILY 5X DAILY WITH WATER
     Dates: start: 20110523, end: 20110610

REACTIONS (4)
  - NAUSEA [None]
  - SYNCOPE [None]
  - ASTHENIA [None]
  - DIZZINESS [None]
